FAERS Safety Report 9759588 (Version 2)
Quarter: 2015Q3

REPORT INFORMATION
  Report Type: Spontaneous
  Country: US (occurrence: US)
  Receive Date: 20131216
  Receipt Date: 20150806
  Transmission Date: 20151125
  Serious: No
  Sender: FDA-Public Use
  Company Number: US-GILEAD-2010-0028139

PATIENT
  Age: 79 Year
  Sex: Female
  Weight: 53.07 kg

DRUGS (29)
  1. GAVISCON [Concomitant]
     Active Substance: ALUMINUM HYDROXIDE\MAGNESIUM CARBONATE
  2. SINGULAIR [Concomitant]
     Active Substance: MONTELUKAST SODIUM
  3. GLUCOSAMINE [Concomitant]
     Active Substance: GLUCOSAMINE
  4. VITAMIN B COMPLEX [Concomitant]
     Active Substance: CYANOCOBALAMIN\DEXPANTHENOL\NIACINAMIDE\PYRIDOXINE HYDROCHLORIDE\RIBOFLAVIN 5^-PHOSPHATE SODIUM\THIAMINE HYDROCHLORIDE\VITAMIN B COMPLEX
  5. PREVACID [Concomitant]
     Active Substance: LANSOPRAZOLE
  6. LETAIRIS [Suspect]
     Active Substance: AMBRISENTAN
     Indication: PULMONARY ARTERIAL HYPERTENSION
     Route: 048
     Dates: start: 20081006
  7. FERROUS SULFATE [Concomitant]
     Active Substance: FERROUS SULFATE\FERROUS SULFATE, DRIED
  8. CENTRUM SILVER [Concomitant]
     Active Substance: VITAMINS
  9. COZAAR [Concomitant]
     Active Substance: LOSARTAN POTASSIUM
  10. ZOLOFT [Concomitant]
     Active Substance: SERTRALINE HYDROCHLORIDE
  11. PREDNISONE. [Concomitant]
     Active Substance: PREDNISONE
  12. MYCOPHENOLATE [Concomitant]
     Active Substance: MYCOPHENOLIC ACID
  13. NORCO [Concomitant]
     Active Substance: ACETAMINOPHEN\HYDROCODONE BITARTRATE
  14. KLOR-CON [Concomitant]
     Active Substance: POTASSIUM CHLORIDE
  15. CLARINEX [Concomitant]
     Active Substance: DESLORATADINE
  16. ZETIA [Concomitant]
     Active Substance: EZETIMIBE
  17. CELLCEPT [Concomitant]
     Active Substance: MYCOPHENOLATE MOFETIL\MYCOPHENOLATE MOFETIL HYDROCHLORIDE
  18. CRESTOR [Concomitant]
     Active Substance: ROSUVASTATIN CALCIUM
  19. XYZAL [Concomitant]
     Active Substance: LEVOCETIRIZINE DIHYDROCHLORIDE
  20. BONIVA [Concomitant]
     Active Substance: IBANDRONATE SODIUM
  21. CALCIUM [Concomitant]
     Active Substance: CALCIUM
  22. TRIGLIDE [Concomitant]
     Active Substance: FENOFIBRATE
  23. METHOTREXATE [Concomitant]
     Active Substance: METHOTREXATE
  24. SYNTHROID [Concomitant]
     Active Substance: LEVOTHYROXINE SODIUM
  25. FOLIC ACID. [Concomitant]
     Active Substance: FOLIC ACID
  26. ASPIRIN. [Concomitant]
     Active Substance: ASPIRIN
  27. FUROSEMIDE. [Concomitant]
     Active Substance: FUROSEMIDE
  28. VIVELLE [Concomitant]
     Active Substance: ESTRADIOL
  29. VITAMIN D [Concomitant]
     Active Substance: CHOLECALCIFEROL

REACTIONS (1)
  - Hair growth abnormal [Unknown]
